FAERS Safety Report 9484765 (Version 2)
Quarter: 2013Q3

REPORT INFORMATION
  Report Type: Spontaneous
  Country: CA (occurrence: CA)
  Receive Date: 20130828
  Receipt Date: 20130828
  Transmission Date: 20140515
  Serious: Yes (Other)
  Sender: FDA-Public Use
  Company Number: CA-AMGEN-KDL412921

PATIENT
  Age: 26 Year
  Sex: Female

DRUGS (5)
  1. ENBREL [Suspect]
     Indication: PSORIATIC ARTHROPATHY
     Dosage: UNK UNK, QWK
     Route: 065
     Dates: start: 20100325
  2. NORTRIPTYLINE [Concomitant]
     Dosage: UNK UNK, UNK
  3. CELECOXIB [Concomitant]
     Dosage: UNK UNK, PRN
  4. FOLIC ACID [Concomitant]
     Dosage: UNK UNK, UNK
  5. FOLINIC ACID [Concomitant]
     Dosage: UNK UNK, UNK

REACTIONS (6)
  - Neuralgia [Unknown]
  - Nervous system disorder [Unknown]
  - Hypoaesthesia [Unknown]
  - Hypoaesthesia [Unknown]
  - White blood cell count decreased [Unknown]
  - Lung infection [Recovered/Resolved]
